FAERS Safety Report 6218819-3 (Version None)
Quarter: 2009Q2

REPORT INFORMATION
  Report Type: 
  Country: None (occurrence: None)
  Receive Date: 20090608
  Receipt Date: 20090525
  Transmission Date: 20091009
  Serious: Yes (Hospitalization, Other)
  Sender: FDA-Public Use
  Company Number: SE-ELI_LILLY_AND_COMPANY-SE200905005771

PATIENT
  Age: 37 Year
  Sex: Male
  Weight: 110.8 kg

DRUGS (2)
  1. ZYPREXA [Suspect]
     Indication: PSYCHOTIC DISORDER
     Dosage: 5 MG, DAILY (1/D)
     Route: 048
     Dates: start: 19980730, end: 19991210
  2. HALDOL [Concomitant]
     Dosage: 4 MG, UNK

REACTIONS (13)
  - ALANINE AMINOTRANSFERASE INCREASED [None]
  - ASCITES [None]
  - BLOOD ALKALINE PHOSPHATASE INCREASED [None]
  - BLOOD BILIRUBIN INCREASED [None]
  - BLOOD LACTATE DEHYDROGENASE INCREASED [None]
  - C-REACTIVE PROTEIN INCREASED [None]
  - CARDIAC FAILURE [None]
  - CARDIOMYOPATHY [None]
  - HYPOALBUMINAEMIA [None]
  - MITRAL VALVE INCOMPETENCE [None]
  - MYOCARDIAL FIBROSIS [None]
  - VENTRICULAR HYPOKINESIA [None]
  - WEIGHT INCREASED [None]
